FAERS Safety Report 7211645-8 (Version None)
Quarter: 2011Q1

REPORT INFORMATION
  Report Type: 
  Country: None (occurrence: None)
  Receive Date: 20110105
  Receipt Date: 20101221
  Transmission Date: 20110831
  Serious: Yes (Hospitalization)
  Sender: FDA-Public Use
  Company Number: JP-AMGEN-JPNCT2011000266

PATIENT

DRUGS (13)
  1. DECADRON [Concomitant]
     Dosage: UNK
     Route: 042
  2. FLUOROURACIL [Suspect]
     Indication: COLORECTAL CANCER
     Route: 040
     Dates: start: 20101007, end: 20101007
  3. CALSLOT [Concomitant]
     Dosage: UNK
     Route: 048
  4. CORTICOSTEROIDS [Concomitant]
     Indication: PROPHYLAXIS
     Dosage: UNK
     Route: 065
  5. FLUOROURACIL [Suspect]
     Route: 041
     Dates: start: 20101007, end: 20101007
  6. IRINOTECAN HYDROCHLORIDE [Suspect]
     Indication: COLORECTAL CANCER
     Route: 041
     Dates: start: 20101007, end: 20101007
  7. ALOXI [Concomitant]
     Dosage: UNK
     Route: 042
  8. HIRUDOID SOFT [Concomitant]
     Dosage: UNK
     Route: 062
  9. AVOLVE [Concomitant]
     Route: 048
  10. ALOSITOL [Concomitant]
     Dosage: UNK
     Route: 048
  11. FERROUS CITRATE [Concomitant]
     Dosage: UNK
     Route: 048
  12. PANITUMUMAB [Suspect]
     Indication: COLORECTAL CANCER
     Dosage: 6 MG/KG, Q2WK
     Route: 041
     Dates: start: 20101007, end: 20101026
  13. CALCIUM LEVOFOLINATE [Suspect]
     Indication: COLORECTAL CANCER
     Route: 041
     Dates: start: 20101007, end: 20101007

REACTIONS (6)
  - HYPERKALAEMIA [None]
  - PLATELET COUNT DECREASED [None]
  - FEBRILE NEUTROPENIA [None]
  - ANAEMIA [None]
  - STOMATITIS [None]
  - PRURITUS [None]
